FAERS Safety Report 15404832 (Version 1)
Quarter: 2018Q3

REPORT INFORMATION
  Report Type: Spontaneous
  Country: ES (occurrence: ES)
  Receive Date: 20180919
  Receipt Date: 20180919
  Transmission Date: 20181010
  Serious: Yes (Hospitalization)
  Sender: FDA-Public Use
  Company Number: ES-B.I. PHARMACEUTICALS,INC./RIDGEFIELD-2018-12-003107

PATIENT
  Age: 52 Year
  Sex: Female

DRUGS (4)
  1. URBASON [Suspect]
     Active Substance: METHYLPREDNISOLONE
     Indication: DYSPNOEA
     Dosage: POWDER AND SOLVENT FOR INJECTABLE SOLUTION, 1 AMPOULE + 1 SOLVENT AMPOULE
     Route: 042
     Dates: start: 20180722, end: 20180722
  2. MORFINA [Suspect]
     Active Substance: MORPHINE HYDROCHLORIDE
     Indication: DYSPNOEA
     Route: 055
     Dates: start: 20180722, end: 20180722
  3. VENTOLIN [Suspect]
     Active Substance: ALBUTEROL SULFATE
     Indication: DYSPNOEA
     Dosage: FORM STRENGTH: 5 MG/ML INHALATION SOLUTION FOR NEBULIZER, 1 BOTTLE OF 10 ML
     Route: 055
     Dates: start: 20180722, end: 20180722
  4. ATROVENT [Suspect]
     Active Substance: IPRATROPIUM BROMIDE
     Indication: DYSPNOEA
     Dosage: FORM STRENGTH/ DOSE: 250 MCG/2ML INHALATION SOLUTION FOR NEBULIZER, 100 AMPOULES OF 1 ML
     Route: 055
     Dates: start: 20180722, end: 20180722

REACTIONS (1)
  - Supraventricular tachycardia [Recovered/Resolved]

NARRATIVE: CASE EVENT DATE: 20180722
